FAERS Safety Report 15553205 (Version 3)
Quarter: 2018Q4

REPORT INFORMATION
  Report Type: Spontaneous
  Country: JP (occurrence: JP)
  Receive Date: 20181026
  Receipt Date: 20181031
  Transmission Date: 20190205
  Serious: Yes (Other)
  Sender: FDA-Public Use
  Company Number: JP-ROCHE-2204103

PATIENT
  Age: 78 Year
  Sex: Female

DRUGS (1)
  1. LUCENTIS [Suspect]
     Active Substance: RANIBIZUMAB
     Indication: NEOVASCULAR AGE-RELATED MACULAR DEGENERATION
     Route: 031

REACTIONS (6)
  - Visual acuity reduced [Unknown]
  - Disease progression [Unknown]
  - Cystoid macular oedema [Unknown]
  - Retinal disorder [Unknown]
  - Therapeutic response decreased [Unknown]
  - Neovascular age-related macular degeneration [Unknown]
